FAERS Safety Report 8181604-X (Version None)
Quarter: 2012Q1

REPORT INFORMATION
  Report Type: 
  Country: None (occurrence: None)
  Receive Date: 20120302
  Receipt Date: 20120224
  Transmission Date: 20120608
  Serious: Yes (Hospitalization)
  Sender: FDA-Public Use
  Company Number: US-ASTRAZENECA-2012SE13071

PATIENT
  Age: 50 Year
  Sex: Male
  Weight: 108.9 kg

DRUGS (7)
  1. NEURONTIN [Suspect]
     Indication: NEUROPATHY PERIPHERAL
     Route: 065
     Dates: start: 20050101
  2. TENORMIN [Suspect]
     Indication: HYPERTENSION
     Route: 048
     Dates: start: 20050101
  3. AMLODIPINE [Suspect]
     Indication: HYPERTENSION
     Route: 065
     Dates: start: 20050101
  4. HYDROCHLOROTHIAZIDE [Suspect]
     Indication: HYPERTENSION
     Route: 065
     Dates: start: 20050101
  5. WELLBUTRIN [Suspect]
     Indication: DEPRESSION
     Route: 065
     Dates: start: 20050101
  6. AMBIEN [Suspect]
     Indication: SLEEP DISORDER
     Route: 065
     Dates: start: 20050101
  7. CITALOPRAM HYDROBROMIDE [Suspect]
     Indication: ANXIETY
     Route: 065
     Dates: start: 20050101

REACTIONS (5)
  - INTERVERTEBRAL DISC PROTRUSION [None]
  - SEXUAL DYSFUNCTION [None]
  - EXOSTOSIS [None]
  - NERVE COMPRESSION [None]
  - DRUG PRESCRIBING ERROR [None]
